FAERS Safety Report 17253277 (Version 2)
Quarter: 2020Q1

REPORT INFORMATION
  Report Type: Report from Study
  Country: None (occurrence: US)
  Receive Date: 20200109
  Receipt Date: 20200124
  Transmission Date: 20200409
  Serious: Yes (Hospitalization, Other)
  Sender: FDA-Public Use
  Company Number: US-ABBVIE-20K-163-3222478-00

PATIENT
  Age: 64 Year
  Sex: Male
  Weight: 98.06 kg

DRUGS (2)
  1. SKYRIZI [Suspect]
     Active Substance: RISANKIZUMAB-RZAA
     Indication: PSORIASIS
     Route: 058
  2. SKYRIZI [Suspect]
     Active Substance: RISANKIZUMAB-RZAA
     Indication: PULMONARY FIBROSIS

REACTIONS (1)
  - Pulmonary fibrosis [Recovering/Resolving]

NARRATIVE: CASE EVENT DATE: 201912
